FAERS Safety Report 4773533-6 (Version None)
Quarter: 2005Q3

REPORT INFORMATION
  Report Type: 
  Country: None (occurrence: None)
  Receive Date: 20050914
  Receipt Date: 20041019
  Transmission Date: 20060218
  Serious: Yes (Other)
  Sender: FDA-Public Use
  Company Number: 163-20785-04100509 (0)

PATIENT
  Age: 81 Year
  Sex: Female

DRUGS (7)
  1. THALOMID [Suspect]
     Indication: MULTIPLE MYELOMA
     Dosage: 200 MG, DAILY, ORAL
     Route: 048
     Dates: start: 20021231, end: 20040602
  2. IMMUNOGLOBULINS (IMMUNOGLOBULINS) [Concomitant]
  3. PREDNISONE [Concomitant]
  4. ALLOPURINOL [Concomitant]
  5. REMERON [Concomitant]
  6. ACCUPRIL [Concomitant]
  7. ASPIRIN [Concomitant]

REACTIONS (1)
  - CEREBROVASCULAR ACCIDENT [None]
